FAERS Safety Report 8921108 (Version 1)
Quarter: 2012Q4

REPORT INFORMATION
  Report Type: 
  Country: SE (occurrence: SE)
  Receive Date: 20121121
  Receipt Date: 20121121
  Transmission Date: 20130627
  Serious: Yes (Hospitalization)
  Sender: FDA-Public Use
  Company Number: SE-PFIZER INC-2012287085

PATIENT
  Age: 36 Year
  Sex: Female
  Weight: 106.5 kg

DRUGS (28)
  1. GENOTROPIN [Suspect]
     Dosage: 1 mg, 1x/day, 7 injections/week
     Route: 058
     Dates: start: 20021118
  2. DESMOPRESSIN [Concomitant]
     Indication: ADH DECREASED
     Dosage: UNK
     Dates: start: 19860101
  3. LEVOTHYROXINE [Concomitant]
     Indication: THYROID DISORDER
     Dosage: UNK
     Dates: start: 19890101
  4. LEVOTHYROXINE [Concomitant]
     Indication: PRIMARY HYPOTHYROIDISM
  5. OESTROGEN ^HOLZINGER^ [Concomitant]
     Indication: LUTEINIZING HORMONE DEFICIENCY
     Dosage: UNK
     Dates: start: 19890115
  6. OESTROGEN ^HOLZINGER^ [Concomitant]
     Indication: FOLLICLE-STIMULATING HORMONE DEFICIENCY
  7. OESTROGEN ^HOLZINGER^ [Concomitant]
     Indication: OVARIAN DISORDER
  8. OESTROGEN ^HOLZINGER^ [Concomitant]
     Indication: HYPOGONADISM
  9. CORTISONE ACETATE [Concomitant]
     Indication: ACTH DECREASED
     Dosage: UNK
     Dates: start: 19990515
  10. DIFLUCAN [Concomitant]
     Indication: VAGINAL CANDIDA
     Dosage: UNK
     Dates: start: 19990916
  11. ESTRACOMB [Concomitant]
     Indication: LUTEINIZING HORMONE DEFICIENCY
     Dosage: UNK
     Dates: start: 19990916
  12. ESTRACOMB [Concomitant]
     Indication: FOLLICLE-STIMULATING HORMONE DEFICIENCY
  13. ESTRACOMB [Concomitant]
     Indication: OVARIAN DISORDER
  14. ESTRACOMB [Concomitant]
     Indication: HYPOGONADISM
  15. HYDROCORTISONE [Concomitant]
     Indication: ACTH DECREASED
     Dosage: UNK
     Dates: start: 20000410
  16. PRIMOLUT-NOR [Concomitant]
     Indication: LUTEINIZING HORMONE DEFICIENCY
     Dosage: UNK
     Dates: start: 20000608
  17. PRIMOLUT-NOR [Concomitant]
     Indication: FOLLICLE-STIMULATING HORMONE DEFICIENCY
  18. PRIMOLUT-NOR [Concomitant]
     Indication: OVARIAN DISORDER
  19. PRIMOLUT-NOR [Concomitant]
     Indication: HYPOGONADISM
  20. PROGYNON [Concomitant]
     Indication: LUTEINIZING HORMONE DEFICIENCY
     Dosage: UNK
     Dates: start: 20000608
  21. PROGYNON [Concomitant]
     Indication: FOLLICLE-STIMULATING HORMONE DEFICIENCY
  22. PROGYNON [Concomitant]
     Indication: OVARIAN DISORDER
  23. PROGYNON [Concomitant]
     Indication: HYPOGONADISM
  24. PREDNISOLON [Concomitant]
     Indication: HEPATITIS
     Dosage: UNK
     Dates: start: 20000707
  25. IMUREL [Concomitant]
     Indication: HEPATITIS
     Dosage: UNK
     Dates: start: 20000830
  26. LASIX RETARD [Concomitant]
     Indication: HYPERTENSION
     Dosage: UNK
     Dates: start: 20011102
  27. DUROFERON [Concomitant]
     Indication: ANEMIA
     Dosage: UNK
     Dates: start: 20011122
  28. DESMOPRESSIN ACETATE [Concomitant]
     Indication: ADH DECREASED
     Dosage: UNK
     Dates: start: 20020529

REACTIONS (1)
  - Influenza [Unknown]
